FAERS Safety Report 10932557 (Version 1)
Quarter: 2015Q1

REPORT INFORMATION
  Report Type: Spontaneous
  Country: US (occurrence: US)
  Receive Date: 20150320
  Receipt Date: 20150320
  Transmission Date: 20150721
  Serious: Yes (Hospitalization, Other)
  Sender: FDA-Public Use
  Company Number: US-UCBSA-2015008048

PATIENT
  Age: 25 Year
  Sex: Male

DRUGS (2)
  1. ZOLOFT [Concomitant]
     Active Substance: SERTRALINE HYDROCHLORIDE
     Indication: PRODUCT USED FOR UNKNOWN INDICATION
     Dosage: UNKNOWN DOSE
  2. KEPPRA XR [Suspect]
     Active Substance: LEVETIRACETAM
     Indication: SEIZURE
     Dosage: 750 MG / 4DAILY
     Dates: start: 200501

REACTIONS (3)
  - Seizure [Unknown]
  - Joint dislocation [Unknown]
  - Post-traumatic epilepsy [Unknown]

NARRATIVE: CASE EVENT DATE: 201312
